FAERS Safety Report 15685183 (Version 1)
Quarter: 2018Q4

REPORT INFORMATION
  Report Type: Spontaneous
  Country: US (occurrence: US)
  Receive Date: 20181204
  Receipt Date: 20181204
  Transmission Date: 20190205
  Serious: Yes (Hospitalization)
  Sender: FDA-Public Use
  Company Number: US-EPIC PHARMA LLC-2018EPC00478

PATIENT
  Age: 48 Year
  Sex: Male

DRUGS (4)
  1. TESTOSTERONE. [Suspect]
     Active Substance: TESTOSTERONE
     Indication: PERFORMANCE ENHANCING PRODUCT USE
     Dosage: 7 MONTHS EACH YEAR FOR 4 YEARS
     Route: 065
  2. DEXTROAMPHET SACCHARAT, AMPHET ASPARTATE, DEXTROAMPHET SULFATE AND AMPHET SULFAT [Suspect]
     Active Substance: AMPHETAMINE ASPARTATE\AMPHETAMINE SULFATE\DEXTROAMPHETAMINE SACCHARATE\DEXTROAMPHETAMINE SULFATE
     Indication: PERFORMANCE ENHANCING PRODUCT USE
     Dosage: 60 MG, 1X/DAY (7 MONTHS EACH YEAR FOR 4 YEARS)
     Route: 065
  3. CAFFEINE. [Suspect]
     Active Substance: CAFFEINE
     Dosage: 560 UNK
     Route: 048
  4. CAFFEINE. [Suspect]
     Active Substance: CAFFEINE
     Dosage: 80 MG, 1X/DAY
     Route: 048

REACTIONS (3)
  - Psychotic disorder [Recovered/Resolved]
  - Drug interaction [Recovered/Resolved]
  - Intentional product misuse [Unknown]
